FAERS Safety Report 11735196 (Version 2)
Quarter: 2017Q1

REPORT INFORMATION
  Report Type: Spontaneous
  Country: US (occurrence: US)
  Receive Date: 20151113
  Receipt Date: 20170309
  Transmission Date: 20170428
  Serious: Yes (Other)
  Sender: FDA-Public Use
  Company Number: US-ELI_LILLY_AND_COMPANY-US201511001085

PATIENT
  Sex: Male

DRUGS (2)
  1. CYMBALTA [Suspect]
     Active Substance: DULOXETINE HYDROCHLORIDE
     Indication: PAIN
     Dosage: 60 MG, QD
     Route: 048
  2. CYMBALTA [Suspect]
     Active Substance: DULOXETINE HYDROCHLORIDE
     Indication: DEPRESSION
     Dosage: 30 MG, EACH MORNING
     Route: 048

REACTIONS (14)
  - Drug withdrawal syndrome [Unknown]
  - Sensory disturbance [Unknown]
  - Homicidal ideation [Unknown]
  - Hyperhidrosis [Unknown]
  - Tearfulness [Unknown]
  - Confusional state [Unknown]
  - Insomnia [Unknown]
  - Agitation [Unknown]
  - Restlessness [Unknown]
  - Affect lability [Unknown]
  - Suicidal ideation [Unknown]
  - Fatigue [Unknown]
  - Anxiety [Unknown]
  - Dysphoria [Unknown]
